FAERS Safety Report 9631428 (Version 2)
Quarter: 2014Q1

REPORT INFORMATION
  Report Type: Spontaneous
  Country: FR (occurrence: FR)
  Receive Date: 20131018
  Receipt Date: 20140103
  Transmission Date: 20141002
  Serious: Yes (Hospitalization)
  Sender: FDA-Public Use
  Company Number: FR-MERCK-1310FRA005479

PATIENT
  Age: 64 Year
  Sex: Male

DRUGS (14)
  1. VIRAFERONPEG [Suspect]
     Indication: ESSENTIAL THROMBOCYTHAEMIA
     Dosage: 80 MICROGRAM, QW
     Route: 058
     Dates: start: 201212
  2. VIRAFERONPEG [Suspect]
     Dosage: 50 MICROGRAM, QW
     Route: 058
  3. INEXIUM [Concomitant]
     Dosage: 40 MG, QD
     Route: 048
  4. METFORMIN [Concomitant]
     Indication: TYPE 2 DIABETES MELLITUS
     Dosage: 500 MG, QD
     Route: 048
  5. UVEDOSE [Concomitant]
     Dosage: 0.066 DF, BIM
     Route: 048
  6. CARDENSIEL [Concomitant]
     Indication: HYPERTENSION
     Dosage: 2.5 MG, QD
     Route: 048
  7. AMLOR [Concomitant]
     Indication: HYPERTENSION
     Dosage: 10 MG, QD
     Route: 048
  8. TRIATEC (RAMIPRIL) [Concomitant]
     Indication: HYPERTENSION
     Dosage: 5 MG, QD
     Route: 048
  9. SIMVASTATIN [Concomitant]
     Dosage: 20 MG, QD
     Route: 048
  10. TAMSULOSIN HYDROCHLORIDE [Concomitant]
     Indication: BENIGN PROSTATIC HYPERPLASIA
     Dosage: 0.4 MG, QD
     Route: 048
  11. ALLOPURINOL [Concomitant]
     Indication: HYPERURICAEMIA
     Dosage: 300 MG, QD
     Route: 048
  12. XANAX [Concomitant]
     Dosage: 0.25 MG, QD
     Route: 048
  13. BETASERC [Concomitant]
     Dosage: 24 MG, BID
     Route: 048
  14. CHONDROSULF [Concomitant]
     Indication: OSTEOARTHRITIS
     Dosage: 3 DF, QD
     Route: 048

REACTIONS (1)
  - Nephrotic syndrome [Unknown]
